FAERS Safety Report 13380714 (Version 1)
Quarter: 2017Q1

REPORT INFORMATION
  Report Type: Spontaneous
  Country: BR (occurrence: BR)
  Receive Date: 20170329
  Receipt Date: 20170329
  Transmission Date: 20170429
  Serious: Yes (Other)
  Sender: FDA-Public Use
  Company Number: BR-009507513-1703BRA010906

PATIENT
  Sex: Male
  Weight: 82 kg

DRUGS (1)
  1. LOSARTAN POTASSIUM. [Suspect]
     Active Substance: LOSARTAN POTASSIUM
     Indication: BLOOD PRESSURE ABNORMAL
     Dosage: 1 TABLET (50 MG), PER DAY
     Route: 048
     Dates: start: 2011

REACTIONS (1)
  - Systemic lupus erythematosus [Unknown]
